FAERS Safety Report 6152871-9 (Version None)
Quarter: 2009Q2

REPORT INFORMATION
  Report Type: 
  Country: None (occurrence: None)
  Receive Date: 20090413
  Receipt Date: 20090406
  Transmission Date: 20091009
  Serious: Yes (Hospitalization)
  Sender: FDA-Public Use
  Company Number: PHHY2008CA29840

PATIENT
  Sex: Female

DRUGS (11)
  1. DIOVAN [Suspect]
     Indication: HYPERTENSION
     Dosage: UNK MG, UNK
     Dates: start: 20070905, end: 20071025
  2. DIOVAN HCT [Suspect]
     Indication: HYPERTENSION
     Dosage: 160/25 MG
     Route: 048
     Dates: start: 20071025, end: 20071025
  3. ASAPHEN [Concomitant]
  4. PERINDOPRIL ERBUMINE [Concomitant]
  5. NOVOLIN [Concomitant]
     Route: 058
  6. VAGIFEM [Concomitant]
  7. ACETAMINOPHEN [Concomitant]
  8. EZETROL [Concomitant]
  9. CALCITE [Concomitant]
  10. DIXARIT [Concomitant]
  11. SYNTHROID [Concomitant]
     Dosage: 112 MG

REACTIONS (5)
  - CHILLS [None]
  - DIARRHOEA [None]
  - NAUSEA [None]
  - TREMOR [None]
  - VOMITING [None]
